FAERS Safety Report 6515955-9 (Version None)
Quarter: 2009Q4

REPORT INFORMATION
  Report Type: 
  Country: None (occurrence: None)
  Receive Date: 20091223
  Receipt Date: 20090318
  Transmission Date: 20100525
  Serious: No
  Sender: FDA-Public Use
  Company Number: US-ABBOTT-09P-163-0563537-00

PATIENT
  Sex: Male
  Weight: 68.1 kg

DRUGS (3)
  1. LUPRON DEPOT [Suspect]
     Indication: PROSTATE CANCER
     Dosage: UNKNOWN DOSE
     Route: 050
     Dates: start: 20070101
  2. ARICEPT [Concomitant]
     Indication: DEMENTIA ALZHEIMER'S TYPE
     Dosage: UNKNOWN
     Route: 048
  3. LEXAPRO [Concomitant]
     Indication: DEMENTIA ALZHEIMER'S TYPE
     Dosage: UNKNOWN
     Route: 048
     Dates: start: 20090201

REACTIONS (1)
  - HERPES ZOSTER [None]
